FAERS Safety Report 4423834-6 (Version None)
Quarter: 2004Q3

REPORT INFORMATION
  Report Type: 
  Country: None (occurrence: None)
  Receive Date: 20040714
  Receipt Date: 20030707
  Transmission Date: 20050211
  Serious: No
  Sender: FDA-Public Use
  Company Number: 200314618US

PATIENT
  Age: 66 Year
  Sex: Female
  Weight: 58.2 kg

DRUGS (6)
  1. TAXOTERE [Suspect]
     Indication: BREAST CANCER
     Dosage: 35 MG/M**2 Q3W
     Dates: start: 20030318
  2. TAXOTERE [Suspect]
     Indication: BREAST CANCER
     Dosage: 61 MG/M**2
  3. PARACETAMOL, OXYCODONE HYDROCHLORIDE (PERCOCET) [Concomitant]
  4. VITAMIN B6 [Concomitant]
  5. DEXAMETHASONE [Concomitant]
  6. DOXORUBICIN HCL [Concomitant]

REACTIONS (9)
  - ALOPECIA [None]
  - DERMATITIS EXFOLIATIVE [None]
  - DYSGEUSIA [None]
  - FATIGUE [None]
  - LACRIMATION INCREASED [None]
  - ONYCHOMADESIS [None]
  - PALMAR-PLANTAR ERYTHRODYSAESTHESIA SYNDROME [None]
  - STOMATITIS [None]
  - WEIGHT DECREASED [None]
